FAERS Safety Report 20746951 (Version 1)
Quarter: 2022Q2

REPORT INFORMATION
  Report Type: Spontaneous
  Country: TW (occurrence: TW)
  Receive Date: 20220425
  Receipt Date: 20220425
  Transmission Date: 20220720
  Serious: Yes (Hospitalization, Other)
  Sender: FDA-Public Use
  Company Number: TW-BEXIMCO-2022BEX00023

PATIENT
  Age: 43 Year
  Sex: Male

DRUGS (2)
  1. METFORMIN HYDROCHLORIDE [Suspect]
     Active Substance: METFORMIN HYDROCHLORIDE
     Indication: Blood glucose abnormal
     Dosage: 1700 MG, 1X/DAY
     Route: 065
  2. VILDAGLIPTIN [Concomitant]
     Active Substance: VILDAGLIPTIN
     Dosage: 100 MG, 1X/DAY
     Route: 065

REACTIONS (6)
  - Pyrexia [Recovering/Resolving]
  - Headache [Recovering/Resolving]
  - Hypoacusis [Recovering/Resolving]
  - Hallucination, auditory [Recovering/Resolving]
  - Aphasia [Recovered/Resolved]
  - Diarrhoea [Recovering/Resolving]
